FAERS Safety Report 6436731-1 (Version None)
Quarter: 2009Q4

REPORT INFORMATION
  Report Type: 
  Country: None (occurrence: None)
  Receive Date: 20091028
  Receipt Date: 20091022
  Transmission Date: 20100525
  Serious: Yes (Hospitalization)
  Sender: FDA-Public Use
  Company Number: 2009020847

PATIENT
  Sex: Female
  Weight: 52.1637 kg

DRUGS (4)
  1. VIVAGLOBIN [Suspect]
     Dosage: 50 ML, 50 ML WEEKLY INTRAVENOUS (NOT OTHERWISE SPECIFIED)
     Route: 042
     Dates: start: 20090916
  2. ADVAIR HFA [Concomitant]
  3. ALBUTEROL [Concomitant]
  4. FLONASE [Concomitant]

REACTIONS (1)
  - SUPERIOR VENA CAVAL OCCLUSION [None]
